FAERS Safety Report 16545335 (Version 2)
Quarter: 2019Q4

REPORT INFORMATION
  Report Type: Spontaneous
  Country: FR (occurrence: FR)
  Receive Date: 20190709
  Receipt Date: 20191204
  Transmission Date: 20200122
  Serious: Yes (Hospitalization)
  Sender: FDA-Public Use
  Company Number: FR-MYLANLABS-2019M1062447

PATIENT
  Age: 69 Year
  Sex: Female
  Weight: 85 kg

DRUGS (6)
  1. METOPROLOL                         /00376904/ [Concomitant]
     Dosage: UNK
  2. AVASTIN [Suspect]
     Active Substance: BEVACIZUMAB
     Indication: NEOPLASM MALIGNANT
     Dosage: 810 MILLIGRAM, TOTAL
     Route: 065
     Dates: start: 20181206
  3. REPAGLINIDE. [Concomitant]
     Active Substance: REPAGLINIDE
     Dosage: UNK
  4. PERINDOPRIL [Concomitant]
     Active Substance: PERINDOPRIL
     Dosage: UNK
  5. PREGABALINE [Concomitant]
     Active Substance: PREGABALIN
     Dosage: UNK
  6. GEMCITABINE. [Suspect]
     Active Substance: GEMCITABINE
     Indication: NEOPLASM MALIGNANT
     Dosage: 1820 MILLIGRAM, TOTAL
     Route: 065
     Dates: start: 20181206

REACTIONS (1)
  - Thrombotic microangiopathy [Recovered/Resolved with Sequelae]

NARRATIVE: CASE EVENT DATE: 20190104
